FAERS Safety Report 5867767-7 (Version None)
Quarter: 2008Q3

REPORT INFORMATION
  Report Type: 
  Country: None (occurrence: None)
  Receive Date: 20080902
  Receipt Date: 20080821
  Transmission Date: 20090109
  Serious: Yes (Death, Hospitalization)
  Sender: FDA-Public Use
  Company Number: US-PFIZER INC-2006033352

PATIENT
  Sex: Male
  Weight: 75 kg

DRUGS (11)
  1. SUTENT [Suspect]
     Indication: RENAL CELL CARCINOMA
     Route: 048
     Dates: start: 20060207, end: 20060221
  2. SUTENT [Suspect]
     Route: 048
     Dates: start: 20060222, end: 20060306
  3. DEXAMETHASONE TAB [Concomitant]
     Indication: METASTASES TO CENTRAL NERVOUS SYSTEM
     Route: 048
  4. LEVETIRACETAM [Concomitant]
     Indication: PROPHYLAXIS
     Route: 048
  5. MULTI-VITAMINS [Concomitant]
     Indication: VITAMIN SUPPLEMENTATION
     Route: 048
  6. ASCORBIC ACID [Concomitant]
     Indication: VITAMIN SUPPLEMENTATION
     Route: 048
  7. ALBUTEROL [Concomitant]
     Indication: METASTASES TO LUNG
     Route: 055
  8. ACETAMINOPHEN [Concomitant]
     Indication: PAIN
     Route: 048
  9. ZOLPIDEM [Concomitant]
     Indication: INSOMNIA
     Route: 048
  10. CIMETIDINE [Concomitant]
     Indication: GASTROOESOPHAGEAL REFLUX DISEASE
     Route: 048
  11. FUROSEMIDE [Concomitant]
     Indication: OEDEMA
     Route: 048

REACTIONS (7)
  - ABDOMINAL PAIN [None]
  - CHILLS [None]
  - DISEASE PROGRESSION [None]
  - DIVERTICULITIS [None]
  - PLEURAL EFFUSION [None]
  - PYREXIA [None]
  - RENAL CELL CARCINOMA [None]
